FAERS Safety Report 26192098 (Version 1)
Quarter: 2025Q4

REPORT INFORMATION
  Report Type: Spontaneous
  Country: US (occurrence: US)
  Receive Date: 20251223
  Receipt Date: 20251223
  Transmission Date: 20260119
  Serious: Yes (Other)
  Sender: ELI LILLY AND COMPANY
  Company Number: US-ELI_LILLY_AND_COMPANY-US202512013668

PATIENT
  Age: 77 Year
  Sex: Male
  Weight: 72.562 kg

DRUGS (10)
  1. DONANEMAB [Suspect]
     Active Substance: DONANEMAB
     Indication: Dementia Alzheimer^s type
     Dosage: 350 MG, EVERY FOUR WEEKS (Q4W)
     Route: 042
     Dates: start: 20251001, end: 20251001
  2. DONANEMAB [Suspect]
     Active Substance: DONANEMAB
     Dosage: 700 MG, EVERY FOUR WEEKS (Q4W)
     Route: 042
     Dates: start: 20251031, end: 20251031
  3. ASPIRIN [Concomitant]
     Active Substance: ASPIRIN
     Indication: Prophylaxis
     Dosage: UNK, UNKNOWN
     Route: 065
     Dates: start: 20250602
  4. CARVEDILOL [Concomitant]
     Active Substance: CARVEDILOL
     Indication: Atrial fibrillation
     Dosage: UNK, UNKNOWN
     Route: 065
     Dates: start: 20250616
  5. CLOPIDOGREL [Concomitant]
     Active Substance: CLOPIDOGREL BISULFATE
     Indication: Atrial fibrillation
     Dosage: UNK, UNKNOWN
     Route: 065
     Dates: start: 20250602
  6. CRESTOR [Concomitant]
     Active Substance: ROSUVASTATIN CALCIUM
     Indication: Hypercholesterolaemia
     Dosage: UNK, UNKNOWN
     Route: 065
     Dates: start: 2005
  7. RIVASTIGMINE [Concomitant]
     Active Substance: RIVASTIGMINE
     Indication: Cognitive disorder
     Dosage: UNK, UNKNOWN
     Route: 065
     Dates: start: 20241019
  8. LEVOTHYROXINE [Concomitant]
     Active Substance: LEVOTHYROXINE
     Indication: Hypothyroidism
     Dosage: UNK, UNKNOWN
     Route: 065
     Dates: start: 2017
  9. TAMSULOSIN [Concomitant]
     Active Substance: TAMSULOSIN
     Indication: Benign prostatic hyperplasia
     Dosage: UNK, UNKNOWN
     Route: 065
     Dates: start: 20250515
  10. CYANOCOBALAMIN [Concomitant]
     Active Substance: CYANOCOBALAMIN
     Indication: Vitamin B12 deficiency
     Dosage: UNK, UNKNOWN
     Route: 065
     Dates: start: 202212

REACTIONS (1)
  - Splenic marginal zone lymphoma [Not Recovered/Not Resolved]

NARRATIVE: CASE EVENT DATE: 20251208
